FAERS Safety Report 8859812 (Version 1)
Quarter: 2012Q4

REPORT INFORMATION
  Report Type: Report from Study
  Country: US (occurrence: US)
  Receive Date: 20121025
  Receipt Date: 20121025
  Transmission Date: 20130627
  Serious: No
  Sender: FDA-Public Use
  Company Number: US-ABBOTT-12P-163-0989059-00

PATIENT
  Age: 41 None
  Sex: Female
  Weight: 74.91 kg

DRUGS (2)
  1. LUPRON DEPOT [Suspect]
     Indication: ENDOMETRIOSIS
  2. LUPRON DEPOT [Suspect]
     Route: 030
     Dates: start: 20120808

REACTIONS (8)
  - Abdominal distension [Unknown]
  - Headache [Recovering/Resolving]
  - Hot flush [Unknown]
  - Abdominal pain [Unknown]
  - Hypomenorrhoea [Unknown]
  - Onychoclasis [Unknown]
  - Intervertebral disc protrusion [Unknown]
  - Intervertebral disc protrusion [Unknown]
